FAERS Safety Report 20166129 (Version 1)
Quarter: 2021Q4

REPORT INFORMATION
  Report Type: Spontaneous
  Country: US (occurrence: US)
  Receive Date: 20211209
  Receipt Date: 20211209
  Transmission Date: 20220303
  Serious: No
  Sender: FDA-Public Use
  Company Number: US-Biofrontera-2021BIO00020

PATIENT
  Age: 65 Year
  Sex: Male

DRUGS (3)
  1. AMELUZ [Suspect]
     Active Substance: AMINOLEVULINIC ACID HYDROCHLORIDE
     Indication: Actinic keratosis
     Route: 061
     Dates: start: 20210927
  2. TriamcinoloneCream [Concomitant]
     Indication: Herpes virus infection
     Dosage: AS NECESSARY
     Dates: start: 2021
  3. VALTREX [Concomitant]
     Active Substance: VALACYCLOVIR HYDROCHLORIDE
     Indication: Herpes virus infection
     Dosage: AS NECESSARY
     Dates: start: 2020

REACTIONS (2)
  - Application site vesicles [Not Recovered/Not Resolved]
  - Off label use [Unknown]

NARRATIVE: CASE EVENT DATE: 20210927
